FAERS Safety Report 25750182 (Version 1)
Quarter: 2025Q3

REPORT INFORMATION
  Report Type: Spontaneous
  Country: CN (occurrence: CN)
  Receive Date: 20250902
  Receipt Date: 20250902
  Transmission Date: 20251021
  Serious: Yes (Hospitalization)
  Sender: ALEXION PHARMACEUTICALS
  Company Number: CN-JNJFOC-20250826563

PATIENT
  Age: 78 Year
  Sex: Male
  Weight: 78 kg

DRUGS (5)
  1. CRESTOR [Suspect]
     Active Substance: ROSUVASTATIN CALCIUM
     Indication: Coronary artery disease
     Dosage: 10 MILLIGRAM, 1/DAY
     Route: 065
  2. ACETAMINOPHEN\TRAMADOL HYDROCHLORIDE [Suspect]
     Active Substance: ACETAMINOPHEN\TRAMADOL HYDROCHLORIDE
     Indication: Intercostal neuralgia
     Dosage: 2 DOSAGE FORM, 3/DAY
     Dates: start: 20250708, end: 20250711
  3. ASPIRIN [Suspect]
     Active Substance: ASPIRIN
     Indication: Coronary artery disease
     Dosage: 100 MILLIGRAM, 1/DAY
     Dates: start: 20240801, end: 20250718
  4. CLOPIDOGREL [Suspect]
     Active Substance: CLOPIDOGREL BISULFATE
     Indication: Coronary artery disease
     Dosage: 75 MILLIGRAM, 1/DAY
     Dates: start: 20240801, end: 20250718
  5. PREGABALIN [Concomitant]
     Active Substance: PREGABALIN
     Indication: Intercostal neuralgia
     Dosage: 1 DOSAGE FORM, 2/DAY
     Dates: start: 20250708, end: 20250715

REACTIONS (8)
  - Haematemesis [Recovered/Resolved]
  - Faeces discoloured [Recovered/Resolved]
  - Chronic gastritis [Unknown]
  - Abdominal pain upper [Unknown]
  - Asthenia [Unknown]
  - Dizziness [Unknown]
  - Chest discomfort [Unknown]
  - Nausea [Unknown]

NARRATIVE: CASE EVENT DATE: 20250718
